FAERS Safety Report 14929170 (Version 1)
Quarter: 2018Q2

REPORT INFORMATION
  Report Type: Spontaneous
  Country: US (occurrence: US)
  Receive Date: 20180523
  Receipt Date: 20180523
  Transmission Date: 20180711
  Serious: No
  Sender: FDA-Public Use
  Company Number: US-TARO-2018TAR00301

PATIENT
  Sex: Male

DRUGS (1)
  1. IMIQUIMOD CREAM 5% [Suspect]
     Active Substance: IMIQUIMOD
     Indication: SKIN CANCER
     Dosage: UNK
     Route: 061
     Dates: start: 201804, end: 20180411

REACTIONS (3)
  - Off label use [Recovered/Resolved]
  - Respiratory tract infection [Recovering/Resolving]
  - Application site haemorrhage [Unknown]

NARRATIVE: CASE EVENT DATE: 201804
